FAERS Safety Report 5339053-5 (Version None)
Quarter: 2007Q2

REPORT INFORMATION
  Report Type: 
  Country: None (occurrence: None)
  Receive Date: 20070330
  Receipt Date: 20060922
  Transmission Date: 20071010
  Serious: Yes (Hospitalization)
  Sender: FDA-Public Use
  Company Number: 2006UW18515

PATIENT
  Age: 55 Year
  Sex: Female

DRUGS (4)
  1. ZESTRIL [Suspect]
  2. VERAPAMIL [Concomitant]
  3. TRIAMTERENE [Concomitant]
  4. SINGULAIR [Concomitant]

REACTIONS (2)
  - HYPERSENSITIVITY [None]
  - SWOLLEN TONGUE [None]
